FAERS Safety Report 9408836 (Version 2)
Quarter: 2014Q1

REPORT INFORMATION
  Report Type: Spontaneous
  Country: BR (occurrence: BR)
  Receive Date: 20130719
  Receipt Date: 20140127
  Transmission Date: 20141002
  Serious: Yes (Congenital Anomaly)
  Sender: FDA-Public Use
  Company Number: BR-ROCHE-1250476

PATIENT
  Sex: Male

DRUGS (1)
  1. ROACUTAN [Suspect]
     Indication: PRODUCT USED FOR UNKNOWN INDICATION
     Route: 064
     Dates: start: 201202, end: 20121130

REACTIONS (11)
  - Feeding disorder neonatal [Unknown]
  - Strabismus [Not Recovered/Not Resolved]
  - Motor dysfunction [Unknown]
  - Cognitive disorder [Unknown]
  - Congenital neurological disorder [Unknown]
  - Congenital central nervous system anomaly [Unknown]
  - Convulsion [Recovered/Resolved]
  - Strabismus [Unknown]
  - Tongue disorder [Unknown]
  - Sluggishness [Unknown]
  - Maternal exposure timing unspecified [Unknown]
